FAERS Safety Report 8167788-8 (Version None)
Quarter: 2012Q1

REPORT INFORMATION
  Report Type: 
  Country: None (occurrence: None)
  Receive Date: 20120227
  Receipt Date: 20120215
  Transmission Date: 20120608
  Serious: Yes (Hospitalization, Other)
  Sender: FDA-Public Use
  Company Number: US-ELI_LILLY_AND_COMPANY-US201103007083

PATIENT
  Sex: Female

DRUGS (9)
  1. OMEPRAZOLE [Concomitant]
     Dosage: 20 MG, QD
  2. METOPROLOL [Concomitant]
     Dosage: 50 MG, QD
  3. CALCIUM [Concomitant]
     Dosage: 1200 MG, UNK
  4. DIGOXIN [Concomitant]
     Dosage: 0.125 MG, QD
  5. TRAMADOL HCL [Concomitant]
     Dosage: 50 MG, QD
  6. DILTIAZEM HCL [Concomitant]
     Dosage: 120 MG, QD
  7. FORTEO [Suspect]
     Indication: OSTEOPOROSIS
     Dosage: 20 UG, QD
     Dates: start: 20100416
  8. ZANTAC [Concomitant]
     Dosage: 150 MG, QD
  9. MULTI-VITAMIN [Concomitant]

REACTIONS (3)
  - SPEECH DISORDER [None]
  - TRANSIENT ISCHAEMIC ATTACK [None]
  - CONFUSIONAL STATE [None]
